FAERS Safety Report 10550225 (Version 2)
Quarter: 2014Q4

REPORT INFORMATION
  Report Type: Spontaneous
  Country: JP (occurrence: JP)
  Receive Date: 20141028
  Receipt Date: 20141118
  Transmission Date: 20150529
  Serious: Yes (Death)
  Sender: FDA-Public Use
  Company Number: JP-MYLANLABS-2014M1008727

PATIENT

DRUGS (8)
  1. RISPERIDONE. [Suspect]
     Active Substance: RISPERIDONE
     Dosage: 6MG
     Route: 065
     Dates: end: 20130131
  2. HALOPERIDOL. [Suspect]
     Active Substance: HALOPERIDOL
     Dosage: 9 MG, QD
     Route: 065
  3. ZOTEPINE [Suspect]
     Active Substance: ZOTEPINE
     Dosage: 150 MG, QD
     Route: 065
     Dates: end: 20130131
  4. BIPERIDEN [Concomitant]
     Active Substance: BIPERIDEN
     Dosage: 6 MG, QD
     Route: 065
  5. LITHIUM [Suspect]
     Active Substance: LITHIUM CARBONATE
     Dosage: 800MG
     Route: 065
     Dates: end: 20130131
  6. VALPROIC ACID. [Concomitant]
     Active Substance: VALPROIC ACID
     Dosage: 600MG
     Route: 065
     Dates: end: 20130131
  7. FLUPHENAZINE [Suspect]
     Active Substance: FLUPHENAZINE
     Dosage: 25 MG, MONTHLY
     Route: 030
     Dates: end: 20130212
  8. LITHIUM [Suspect]
     Active Substance: LITHIUM CARBONATE
     Dosage: 600 MG, QD
     Route: 065
     Dates: end: 20130131

REACTIONS (2)
  - Neuroleptic malignant syndrome [Fatal]
  - Respiratory failure [Fatal]

NARRATIVE: CASE EVENT DATE: 20130214
